FAERS Safety Report 5093220-7 (Version None)
Quarter: 2006Q3

REPORT INFORMATION
  Report Type: 
  Country: None (occurrence: None)
  Receive Date: 20060829
  Receipt Date: 20060829
  Transmission Date: 20061208
  Serious: Yes (Hospitalization)
  Sender: FDA-Public Use
  Company Number: None

PATIENT
  Age: 49 Year
  Sex: Male
  Weight: 77 kg

DRUGS (4)
  1. AMITRIPTYLINE HCL [Suspect]
     Dosage: 150 MG PO QHS
     Route: 048
  2. TRAMADOL HCL [Concomitant]
  3. APAP TAB [Concomitant]
  4. GUAIFENESIN [Concomitant]

REACTIONS (4)
  - INCORRECT DOSE ADMINISTERED [None]
  - LETHARGY [None]
  - MEDICATION ERROR [None]
  - SUICIDE ATTEMPT [None]
